FAERS Safety Report 8056051-1 (Version None)
Quarter: 2011Q4

REPORT INFORMATION
  Report Type: 
  Country: None (occurrence: None)
  Receive Date: 20111219
  Receipt Date: 20110622
  Transmission Date: 20120403
  Serious: Yes (Other)
  Sender: FDA-Public Use
  Company Number: WAES 1106USA03135

PATIENT
  Age: 70 Year
  Sex: Male

DRUGS (9)
  1. GLIMEPIRIDE [Concomitant]
  2. SIMVASTATIN [Concomitant]
  3. METFORMIN HCL [Concomitant]
  4. JANUVIA [Suspect]
     Indication: DIABETES MELLITUS
     Dosage: 100 MG/DAILY/PO
     Route: 048
     Dates: start: 20090601
  5. LEVOTHYROXINE SODIUM [Concomitant]
  6. LISINOPRIL [Concomitant]
  7. PLAVIX [Concomitant]
  8. RANITIDINE [Concomitant]
  9. SERTRALINE HYDROCHLORIDE [Concomitant]

REACTIONS (1)
  - PANCREATITIS [None]
